FAERS Safety Report 4926784-1 (Version None)
Quarter: 2006Q1

REPORT INFORMATION
  Report Type: 
  Country: None (occurrence: None)
  Receive Date: 20060228
  Receipt Date: 20050613
  Transmission Date: 20060701
  Serious: No
  Sender: FDA-Public Use
  Company Number: S05-USA-02823-01

PATIENT
  Age: 75 Year
  Sex: Female

DRUGS (5)
  1. LAMICTAL [Suspect]
     Indication: BIPOLAR DISORDER
     Route: 048
     Dates: start: 20050502
  2. NAMENDA [Suspect]
     Indication: BIPOLAR DISORDER
     Dates: start: 20050509
  3. WELLBUTRIN [Concomitant]
     Route: 048
  4. TRIAMTERENE [Concomitant]
  5. OCUVITE [Concomitant]

REACTIONS (1)
  - INCREASED TENDENCY TO BRUISE [None]
